FAERS Safety Report 4968565-9 (Version None)
Quarter: 2006Q2

REPORT INFORMATION
  Report Type: 
  Country: None (occurrence: None)
  Receive Date: 20060411
  Receipt Date: 20060330
  Transmission Date: 20061013
  Serious: Yes (Life-Threatening, Other)
  Sender: FDA-Public Use
  Company Number: JP-JNJFOC-20051005993

PATIENT
  Sex: Female
  Weight: 60 kg

DRUGS (13)
  1. REMICADE [Suspect]
     Dosage: PATIENT RECIEVED A TOTAL OF FOUR INFUSIONS.
     Route: 042
  2. REMICADE [Suspect]
     Route: 042
  3. REMICADE [Suspect]
     Route: 042
  4. REMICADE [Suspect]
     Indication: RHEUMATOID ARTHRITIS
     Route: 042
  5. RHEUMATREX [Suspect]
     Dosage: IMPROVEMENT WITH DISCONTINUATION OF DRUG
     Route: 048
  6. RHEUMATREX [Suspect]
     Indication: RHEUMATOID ARTHRITIS
     Route: 048
  7. PREDONINE [Suspect]
     Route: 048
  8. PREDONINE [Suspect]
     Indication: RHEUMATOID ARTHRITIS
     Dosage: DOSED REDUCED
     Route: 048
  9. ISCOTIN [Concomitant]
     Route: 048
  10. ISCOTIN [Concomitant]
     Indication: PROPHYLAXIS
     Route: 048
  11. PYDOXAL [Concomitant]
     Route: 065
  12. AZULFIDINE EN-TABS [Concomitant]
  13. FOLIAMIN [Concomitant]
     Route: 065

REACTIONS (4)
  - CYTOMEGALOVIRUS INFECTION [None]
  - HYPONATRAEMIA [None]
  - PNEUMOCYSTIS JIROVECI PNEUMONIA [None]
  - RENAL DISORDER [None]
